FAERS Safety Report 10623294 (Version 3)
Quarter: 2015Q1

REPORT INFORMATION
  Report Type: Spontaneous
  Country: CA (occurrence: CA)
  Receive Date: 20141203
  Receipt Date: 20150105
  Transmission Date: 20150720
  Serious: Yes (Other)
  Sender: FDA-Public Use
  Company Number: PHHY2014CA153717

PATIENT
  Sex: Female

DRUGS (1)
  1. FIORINAL [Suspect]
     Active Substance: ASPIRIN\BUTALBITAL\CAFFEINE
     Indication: PRODUCT USED FOR UNKNOWN INDICATION
     Route: 065

REACTIONS (4)
  - Poor quality sleep [Unknown]
  - Drug ineffective [Unknown]
  - Aneurysm [Unknown]
  - Headache [Not Recovered/Not Resolved]
